FAERS Safety Report 6158527-0 (Version None)
Quarter: 2009Q2

REPORT INFORMATION
  Report Type: 
  Country: None (occurrence: None)
  Receive Date: 20090417
  Receipt Date: 20090401
  Transmission Date: 20091009
  Serious: Yes (Other)
  Sender: FDA-Public Use
  Company Number: PHHY2008CN14311

PATIENT
  Age: 30 Year
  Sex: Female

DRUGS (1)
  1. PARLODEL [Suspect]
     Dosage: 1.25 MG, BID
     Route: 048
     Dates: start: 20071201

REACTIONS (3)
  - CAESAREAN SECTION [None]
  - DRUG EXPOSURE DURING PREGNANCY [None]
  - NORMAL NEWBORN [None]
